FAERS Safety Report 11046505 (Version 2)
Quarter: 2017Q2

REPORT INFORMATION
  Report Type: Spontaneous
  Country: US (occurrence: US)
  Receive Date: 20150420
  Receipt Date: 20170504
  Transmission Date: 20170829
  Serious: No
  Sender: FDA-Public Use
  Company Number: US-TEVA-546862USA

PATIENT
  Sex: Male

DRUGS (1)
  1. NIACIN. [Suspect]
     Active Substance: NIACIN
     Route: 065

REACTIONS (3)
  - Asthenia [Unknown]
  - Drug hypersensitivity [Unknown]
  - Myalgia [Unknown]
